FAERS Safety Report 15926743 (Version 2)
Quarter: 2019Q1

REPORT INFORMATION
  Report Type: Spontaneous
  Country: US (occurrence: US)
  Receive Date: 20190205
  Receipt Date: 20190219
  Transmission Date: 20190417
  Serious: No
  Sender: FDA-Public Use
  Company Number: US-ALLERGAN-1847809US

PATIENT
  Age: 64 Year
  Sex: Female

DRUGS (7)
  1. NATIVIA [DESMOPRESSIN ACETATE] [Suspect]
     Active Substance: DESMOPRESSIN ACETATE
     Indication: NOCTURIA
     Route: 065
  2. TRIMETHOPRIM. [Concomitant]
     Active Substance: TRIMETHOPRIM
     Dosage: UNK
  3. VAGINAL ESTROGEN [Concomitant]
     Dosage: UNK
     Route: 067
  4. MONOUROL [Concomitant]
     Dosage: UNK
  5. BOTOX [Suspect]
     Active Substance: ONABOTULINUMTOXINA
     Indication: POLLAKIURIA
     Dosage: 200 UNITS, SINGLE
     Route: 043
     Dates: start: 20180514, end: 20180514
  6. BLOOD PRESSURE MEDICATIONS [Concomitant]
     Active Substance: UNSPECIFIED INGREDIENT
     Indication: HYPERTENSION
     Dosage: UNK
     Route: 048
  7. HIPREX [Concomitant]
     Active Substance: METHENAMINE HIPPURATE
     Dosage: UNK

REACTIONS (4)
  - Drug ineffective [Unknown]
  - Off label use [Unknown]
  - Urinary retention [Unknown]
  - Abdominal pain [Unknown]

NARRATIVE: CASE EVENT DATE: 20180514
